FAERS Safety Report 9505637 (Version 1)
Quarter: 2013Q1

REPORT INFORMATION
  Report Type: Spontaneous
  Country: US (occurrence: None)
  Receive Date: 20130220
  Receipt Date: 20130220
  Transmission Date: 20140127
  Serious: No
  Sender: FDA-Public Use
  Company Number: 1000041080

PATIENT
  Age: 61 Year
  Sex: Female

DRUGS (4)
  1. VIIBYRD [Suspect]
     Indication: DEPRESSION
     Dosage: 40 MG (40 MG, 1 IN1 D), ORAL
     Route: 048
     Dates: start: 2011
  2. RANITIDINE [Suspect]
  3. BUSPIRONE (BUSPIRONE) (BUSPIRONE) [Concomitant]
  4. ABILIFY (ARIPIPRAZOLE) (ARIIPIPRAZOLE) [Concomitant]

REACTIONS (3)
  - Depression [None]
  - Diarrhoea [None]
  - Abnormal faeces [None]
